FAERS Safety Report 4786792-0 (Version None)
Quarter: 2005Q4

REPORT INFORMATION
  Report Type: 
  Country: None (occurrence: None)
  Receive Date: 20051004
  Receipt Date: 20050920
  Transmission Date: 20060501
  Serious: Yes (Death, Other)
  Sender: FDA-Public Use
  Company Number: DE-JNJFOC-20050904924

PATIENT
  Sex: Male
  Weight: 0.64 kg

DRUGS (1)
  1. TOPAMAX [Suspect]
     Indication: DRUG USE FOR UNKNOWN INDICATION

REACTIONS (16)
  - APLASIA [None]
  - ASPHYXIA [None]
  - ATELECTASIS NEONATAL [None]
  - BRADYCARDIA [None]
  - CAESAREAN SECTION [None]
  - CHORIOAMNIONITIS [None]
  - CONGENITAL EYELID MALFORMATION [None]
  - CONGENITAL NAIL DISORDER [None]
  - CONGENITAL SCOLIOSIS [None]
  - HYDROCEPHALUS [None]
  - OMPHALITIS [None]
  - PNEUMOTHORAX [None]
  - PREMATURE LABOUR [None]
  - RIB DEFORMITY [None]
  - SPINE MALFORMATION [None]
  - VATER SYNDROME [None]
